FAERS Safety Report 7327622-2 (Version None)
Quarter: 2011Q1

REPORT INFORMATION
  Report Type: 
  Country: None (occurrence: None)
  Receive Date: 20110303
  Receipt Date: 20110223
  Transmission Date: 20110831
  Serious: No
  Sender: FDA-Public Use
  Company Number: US-BIOGENIDEC-2011BI007491

PATIENT
  Sex: Female

DRUGS (1)
  1. AVONEX [Suspect]
     Indication: MULTIPLE SCLEROSIS
     Route: 030
     Dates: start: 19970715, end: 19980715

REACTIONS (6)
  - VERTIGO [None]
  - FALL [None]
  - DIZZINESS [None]
  - OEDEMA PERIPHERAL [None]
  - NAUSEA [None]
  - TREMOR [None]
